FAERS Safety Report 7131618-3 (Version None)
Quarter: 2010Q4

REPORT INFORMATION
  Report Type: 
  Country: None (occurrence: None)
  Receive Date: 20101201
  Receipt Date: 20101116
  Transmission Date: 20110411
  Serious: Yes (Other)
  Sender: FDA-Public Use
  Company Number: US-AMGEN-USASP2010005630

PATIENT

DRUGS (5)
  1. NEULASTA [Suspect]
     Indication: CHEMOTHERAPY
     Dates: start: 20100901
  2. NEULASTA [Suspect]
     Dates: start: 20100101
  3. NEUPOGEN [Suspect]
     Indication: CHEMOTHERAPY
     Dosage: UNK
     Dates: start: 20100101
  4. ADRIAMYCIN PFS [Concomitant]
  5. CYCLOPHOSPHAMIDE [Concomitant]

REACTIONS (5)
  - ABDOMINAL PAIN [None]
  - BONE PAIN [None]
  - ESCHERICHIA URINARY TRACT INFECTION [None]
  - MALAISE [None]
  - NEUTROPENIA [None]
